FAERS Safety Report 6578179-5 (Version None)
Quarter: 2010Q1

REPORT INFORMATION
  Report Type: 
  Country: None (occurrence: None)
  Receive Date: 20100211
  Receipt Date: 20100203
  Transmission Date: 20100710
  Serious: Yes (Other)
  Sender: FDA-Public Use
  Company Number: US-JNJCH-2010003589

PATIENT
  Sex: Male
  Weight: 80.7 kg

DRUGS (3)
  1. ROGAINE [Suspect]
     Indication: DRUG USE FOR UNKNOWN INDICATION
     Dosage: TEXT:TWO DROPPERFULS THEN 1/2 DOSE 2X A DAY
     Route: 061
  2. KEPPRA [Concomitant]
     Indication: DRUG USE FOR UNKNOWN INDICATION
     Dosage: TEXT:2000MG
     Route: 065
  3. OXCARBAZEPINE [Concomitant]
     Indication: DRUG USE FOR UNKNOWN INDICATION
     Dosage: TEXT:1200MG
     Route: 065

REACTIONS (5)
  - CONVULSION [None]
  - OVERDOSE [None]
  - SIMILAR REACTION ON PREVIOUS EXPOSURE TO DRUG [None]
  - SYNCOPE [None]
  - UNDERDOSE [None]
